FAERS Safety Report 11077941 (Version 1)
Quarter: 2015Q2

REPORT INFORMATION
  Report Type: Spontaneous
  Country: US (occurrence: None)
  Receive Date: 20150429
  Receipt Date: 20150429
  Transmission Date: 20150821
  Serious: No
  Sender: FDA-Public Use
  Company Number: None

PATIENT
  Age: 81 Year
  Sex: Female
  Weight: 74.39 kg

DRUGS (15)
  1. PROLONSA [Concomitant]
  2. CARVEDILOL. [Concomitant]
     Active Substance: CARVEDILOL
  3. ATROPINE [Concomitant]
     Active Substance: ATROPINE
  4. HIPREX [Suspect]
     Active Substance: METHENAMINE HIPPURATE
     Indication: URINARY TRACT INFECTION
     Route: 048
     Dates: start: 20140105, end: 20150319
  5. FLOXAMADIOL [Concomitant]
  6. LISINOPRIL. [Concomitant]
     Active Substance: LISINOPRIL
  7. ASPIRIN. [Concomitant]
     Active Substance: ASPIRIN
  8. CALCIUM [Concomitant]
     Active Substance: CALCIUM
  9. SODIUM CHLORIDE. [Concomitant]
     Active Substance: SODIUM CHLORIDE
  10. FISH OIL [Concomitant]
     Active Substance: FISH OIL
  11. UREX [Suspect]
     Active Substance: METHENAMINE HIPPURATE
  12. DOROZOLAMIDE HCI [Concomitant]
  13. OPHTHALMIC SOLUTION [Concomitant]
  14. TRAMADOL [Concomitant]
     Active Substance: TRAMADOL
  15. MULTIVITA [Concomitant]

REACTIONS (1)
  - Haemorrhage [None]
